FAERS Safety Report 7787552-9 (Version None)
Quarter: 2011Q3

REPORT INFORMATION
  Report Type: 
  Country: None (occurrence: None)
  Receive Date: 20110929
  Receipt Date: 20110923
  Transmission Date: 20111222
  Serious: Yes (Other)
  Sender: FDA-Public Use
  Company Number: US-AMGEN-USASP2011018218

PATIENT
  Age: 70 Year
  Sex: Female

DRUGS (6)
  1. TOBRADEX [Concomitant]
  2. NEUPOGEN [Suspect]
     Indication: NEUTROPENIA
     Dates: start: 20110104, end: 20110302
  3. PRADAXA                            /01633202/ [Concomitant]
  4. IRON [Concomitant]
  5. LASIX [Concomitant]
  6. LIPITOR [Concomitant]

REACTIONS (3)
  - ERYTHEMA NODOSUM [None]
  - ATRIAL FIBRILLATION [None]
  - WHITE BLOOD CELL COUNT INCREASED [None]
